FAERS Safety Report 6372512-5 (Version None)
Quarter: 2009Q3

REPORT INFORMATION
  Report Type: 
  Country: None (occurrence: None)
  Receive Date: 20090924
  Receipt Date: 20081230
  Transmission Date: 20100115
  Serious: Yes (Hospitalization)
  Sender: FDA-Public Use
  Company Number: US-ASTRAZENECA-2008UW19055

PATIENT
  Age: 13650 Day
  Sex: Female
  Weight: 113.4 kg

DRUGS (3)
  1. SEROQUEL [Suspect]
     Indication: SCHIZOPHRENIA
     Route: 048
     Dates: start: 20020201, end: 20071031
  2. SEROQUEL [Suspect]
     Indication: DEPRESSION
     Route: 048
     Dates: start: 20020201, end: 20071031
  3. ZYPREXA [Concomitant]
     Dates: start: 20010201, end: 20021101

REACTIONS (1)
  - TYPE 2 DIABETES MELLITUS [None]
